FAERS Safety Report 19995982 (Version 3)
Quarter: 2023Q1

REPORT INFORMATION
  Report Type: Spontaneous
  Country: US (occurrence: US)
  Receive Date: 20211026
  Receipt Date: 20230224
  Transmission Date: 20230418
  Serious: No
  Sender: FDA-Public Use
  Company Number: US-PFIZER INC-202101406030

PATIENT
  Age: 90 Year
  Sex: Female

DRUGS (1)
  1. NITROSTAT [Suspect]
     Active Substance: NITROGLYCERIN
     Dosage: 0.4 MG

REACTIONS (8)
  - Expired product administered [Unknown]
  - Tongue discomfort [Unknown]
  - Stress [Unknown]
  - Fall [Unknown]
  - Dyspnoea [Unknown]
  - Eye disorder [Unknown]
  - Headache [Unknown]
  - Peripheral swelling [Unknown]
